FAERS Safety Report 26157830 (Version 1)
Quarter: 2025Q4

REPORT INFORMATION
  Report Type: Spontaneous
  Country: EU (occurrence: None)
  Receive Date: 20251213
  Receipt Date: 20251213
  Transmission Date: 20260117
  Serious: Yes (Life-Threatening, Hospitalization, Disabling, Other)
  Sender: FDA-CTU
  Company Number: None

PATIENT
  Age: 24 Year
  Sex: Male
  Weight: 80 kg

DRUGS (1)
  1. CITALOPRAM [Suspect]
     Active Substance: CITALOPRAM
     Indication: Anxiety
     Dosage: FREQUENCY : DAILY;
     Route: 048
     Dates: start: 20241114, end: 20251014

REACTIONS (2)
  - Sexual dysfunction [None]
  - Withdrawal syndrome [None]

NARRATIVE: CASE EVENT DATE: 20251201
